FAERS Safety Report 6161009-3 (Version None)
Quarter: 2009Q2

REPORT INFORMATION
  Report Type: 
  Country: None (occurrence: None)
  Receive Date: 20090420
  Receipt Date: 20090416
  Transmission Date: 20091009
  Serious: Yes (Hospitalization)
  Sender: FDA-Public Use
  Company Number: US-PFIZER INC-2009153782

PATIENT
  Sex: Male
  Weight: 99.773 kg

DRUGS (25)
  1. NAPROXEN [Suspect]
     Indication: OSTEOARTHRITIS
     Dosage: UNK
     Route: 048
     Dates: start: 20080512
  2. BLINDED *PLACEBO [Suspect]
     Indication: OSTEOARTHRITIS
     Dosage: UNK
     Route: 048
     Dates: start: 20080512
  3. BLINDED CELECOXIB [Suspect]
     Indication: OSTEOARTHRITIS
     Dosage: UNK
     Route: 048
     Dates: start: 20080512
  4. IBUPROFEN [Suspect]
     Indication: OSTEOARTHRITIS
     Dosage: UNK
     Route: 048
     Dates: start: 20080512
  5. NAPROXEN [Suspect]
     Dosage: UNK
     Route: 048
     Dates: start: 20080512
  6. NEXIUM [Concomitant]
     Dosage: UNK
     Dates: end: 20080812
  7. PLAVIX [Concomitant]
     Indication: CARDIAC DISORDER
     Dosage: 75 MG, 1X/DAY
     Dates: start: 20070101
  8. CITALOPRAM [Concomitant]
     Indication: POST-TRAUMATIC STRESS DISORDER
     Dosage: 20 MG, 1X/DAY
     Dates: start: 20070101
  9. SIMVASTATIN [Concomitant]
     Indication: BLOOD CHOLESTEROL
     Dosage: 80 MG, 1X/DAY
     Dates: start: 20071201
  10. EZETIMIBE [Concomitant]
     Indication: BLOOD CHOLESTEROL
     Dosage: 10 MG, 1X/DAY
     Dates: start: 20071201
  11. COLESTIPOL HYDROCHLORIDE [Concomitant]
     Indication: BLOOD CHOLESTEROL
     Dosage: 16 RPM, 2X/DAY
     Dates: start: 20071201
  12. HYDROCHLOROTHIAZIDE [Concomitant]
     Indication: HYPERTENSION
     Dosage: 12.5 MG, QAM
     Dates: start: 20070101
  13. METOPROLOL TARTRATE [Concomitant]
     Indication: HYPERTENSION
     Dosage: 12.5 MG, 2X/DAY
     Dates: start: 20070101
  14. FERROUS SULFATE [Concomitant]
     Indication: SUPPLEMENTATION THERAPY
     Dosage: 325 MG, 1X/DAY
     Dates: start: 20050101
  15. OMEPRAZOLE [Concomitant]
     Indication: GASTROOESOPHAGEAL REFLUX DISEASE
     Dosage: 20 MG, 1X/DAY
     Dates: start: 20050101
  16. IBUPROFEN [Concomitant]
     Indication: ARTHRITIS
     Dosage: 600 MG, 3X/DAY
     Dates: start: 20060101, end: 20080511
  17. TYLENOL [Concomitant]
     Indication: ARTHRITIS
     Dosage: 500 MG, 3X/DAY
     Dates: start: 20060101
  18. CHOLESTEROL- AND TRIGLYCERIDE REDUCERS [Concomitant]
     Indication: SUPPLEMENTATION THERAPY
     Dosage: 1 CAP, BID
     Dates: start: 19981201
  19. OTHER DRUGS FOR DISORD. OF THE MUSCULO-SKELET.SYST [Concomitant]
     Indication: SUPPLEMENTATION THERAPY
     Dosage: 2 CAPS, BID
     Dates: start: 20010101
  20. SELENIUM [Concomitant]
     Indication: SUPPLEMENTATION THERAPY
     Dosage: 1 CAP, BID
     Dates: start: 19890101
  21. FOLIC ACID [Concomitant]
     Indication: SUPPLEMENTATION THERAPY
     Dosage: 2 TABS, BID
     Dates: start: 20080101
  22. ZINC [Concomitant]
     Indication: SUPPLEMENTATION THERAPY
     Dosage: 1 CAP, DAILY
     Dates: start: 20080101
  23. SAW PALMETTO [Concomitant]
     Indication: SUPPLEMENTATION THERAPY
     Dosage: 1 CAP, DAILY
     Dates: start: 20080101
  24. GLUCOSAMINE SULFATE [Concomitant]
     Indication: SUPPLEMENTATION THERAPY
     Dosage: 4 TABS, BID
     Dates: start: 19980101
  25. PRILOSEC [Concomitant]
     Indication: GASTROINTESTINAL ULCER
     Dosage: 1 TAB, BID
     Dates: start: 20080812

REACTIONS (1)
  - AORTIC ANEURYSM REPAIR [None]
